FAERS Safety Report 23210970 (Version 1)
Quarter: 2023Q4

REPORT INFORMATION
  Report Type: Spontaneous
  Country: US (occurrence: None)
  Receive Date: 20231120
  Receipt Date: 20231120
  Transmission Date: 20240110
  Serious: Yes (Hospitalization)
  Sender: FDA-Public Use
  Company Number: None

PATIENT
  Age: 53 Year
  Sex: Male
  Weight: 143.1 kg

DRUGS (3)
  1. AXICABTAGENE CILOLEUCEL [Suspect]
     Active Substance: AXICABTAGENE CILOLEUCEL
     Indication: Follicular lymphoma
     Dosage: FREQUENCY : ONCE;?
     Route: 041
     Dates: start: 20231016, end: 20231016
  2. LEVETIRACETAM [Concomitant]
     Active Substance: LEVETIRACETAM
  3. VALACYCLOVIR [Concomitant]
     Active Substance: VALACYCLOVIR HYDROCHLORIDE

REACTIONS (2)
  - Cytokine release syndrome [None]
  - Essential tremor [None]

NARRATIVE: CASE EVENT DATE: 20231018
